FAERS Safety Report 5529280-6 (Version None)
Quarter: 2007Q4

REPORT INFORMATION
  Report Type: 
  Country: None (occurrence: None)
  Receive Date: 20071119
  Receipt Date: 20070918
  Transmission Date: 20080405
  Serious: No
  Sender: FDA-Public Use
  Company Number: TPA2007A01937

PATIENT
  Age: 53 Year
  Sex: Male
  Weight: 98.4306 kg

DRUGS (3)
  1. ROZEREM [Suspect]
     Indication: INSOMNIA
     Dosage: 8 MG, HS, PER ORAL
     Route: 048
     Dates: start: 20070301, end: 20070301
  2. XANAX [Concomitant]
  3. TEMAZEPAM [Concomitant]

REACTIONS (1)
  - POOR QUALITY SLEEP [None]
